FAERS Safety Report 26139503 (Version 1)
Quarter: 2025Q4

REPORT INFORMATION
  Report Type: Report from Study
  Country: US (occurrence: US)
  Receive Date: 20251210
  Receipt Date: 20251210
  Transmission Date: 20260117
  Serious: Yes (Other)
  Sender: TAKEDA
  Company Number: US-TAKEDA-2025TUS110335

PATIENT
  Age: 77 Year
  Sex: Male

DRUGS (1)
  1. FRUQUINTINIB [Suspect]
     Active Substance: FRUQUINTINIB
     Indication: Colon cancer
     Dosage: 1 MILLIGRAM, QD
     Dates: start: 20251028

REACTIONS (3)
  - Neuropathy peripheral [Unknown]
  - Blood potassium increased [Unknown]
  - Fatigue [Unknown]
